FAERS Safety Report 4629266-X (Version None)
Quarter: 2005Q2

REPORT INFORMATION
  Report Type: 
  Country: None (occurrence: None)
  Receive Date: 20050405
  Receipt Date: 20050321
  Transmission Date: 20051028
  Serious: Yes (Death, Hospitalization)
  Sender: FDA-Public Use
  Company Number: 204487

PATIENT
  Age: 64 Year
  Sex: Female
  Weight: 58.9676 kg

DRUGS (8)
  1. AVONEX [Suspect]
     Indication: MULTIPLE SCLEROSIS
     Dosage: IM
     Route: 030
     Dates: start: 19980101, end: 20040601
  2. MS MEDICATION [Concomitant]
  3. LIPITOR [Concomitant]
  4. NEXIUM [Concomitant]
  5. TEGRETOL [Concomitant]
  6. AVALIDE [Concomitant]
  7. RISPERDAL [Concomitant]
  8. ELAVIL [Concomitant]

REACTIONS (8)
  - ANXIETY [None]
  - APNOEA [None]
  - ASTHENIA [None]
  - DIFFICULTY IN WALKING [None]
  - GALLBLADDER CANCER [None]
  - GASTRIC CANCER [None]
  - PULMONARY OEDEMA [None]
  - SMALL INTESTINE CARCINOMA [None]
